FAERS Safety Report 4979284-7 (Version None)
Quarter: 2006Q2

REPORT INFORMATION
  Report Type: 
  Country: None (occurrence: None)
  Receive Date: 20060421
  Receipt Date: 20050921
  Transmission Date: 20061013
  Serious: Yes (Hospitalization, Disabling)
  Sender: FDA-Public Use
  Company Number: US-MERCK-0509USA03420

PATIENT
  Age: 63 Year
  Sex: Male
  Weight: 66 kg

DRUGS (5)
  1. VIOXX [Suspect]
     Indication: ARTHRITIS
     Route: 048
     Dates: start: 19991201, end: 20010403
  2. PRILOSEC [Concomitant]
     Route: 065
  3. COREG [Concomitant]
     Indication: EYE DISORDER
     Route: 065
     Dates: start: 19700101
  4. COREG [Concomitant]
     Indication: CARDIAC DISORDER
     Route: 065
     Dates: start: 19700101
  5. METHAZOLAMIDE [Concomitant]
     Indication: GLAUCOMA
     Route: 065
     Dates: start: 19700101

REACTIONS (12)
  - ACUTE MYOCARDIAL INFARCTION [None]
  - AORTIC VALVE INCOMPETENCE [None]
  - ARTERIOSCLEROSIS CORONARY ARTERY [None]
  - DEHYDRATION [None]
  - EJECTION FRACTION DECREASED [None]
  - HYPERCHOLESTEROLAEMIA [None]
  - HYPERTENSIVE HEART DISEASE [None]
  - ISCHAEMIC CARDIOMYOPATHY [None]
  - MITRAL VALVE INCOMPETENCE [None]
  - PULMONARY HYPERTENSION [None]
  - SINUS BRADYCARDIA [None]
  - VENTRICULAR EXTRASYSTOLES [None]
